FAERS Safety Report 6122408-9 (Version None)
Quarter: 2009Q1

REPORT INFORMATION
  Report Type: 
  Country: None (occurrence: None)
  Receive Date: 20090318
  Receipt Date: 20090211
  Transmission Date: 20090719
  Serious: No
  Sender: FDA-Public Use
  Company Number: US-ASTRAZENECA-2009UW03888

PATIENT

DRUGS (2)
  1. SYMBICORT [Suspect]
     Route: 055
  2. FLONASE [Concomitant]

REACTIONS (1)
  - EPISTAXIS [None]
